FAERS Safety Report 12195818 (Version 1)
Quarter: 2016Q1

REPORT INFORMATION
  Report Type: Spontaneous
  Country: CN (occurrence: CN)
  Receive Date: 20160321
  Receipt Date: 20160321
  Transmission Date: 20160526
  Serious: Yes (Hospitalization)
  Sender: FDA-Public Use
  Company Number: CN-NOVOPROD-484049

PATIENT
  Sex: Male
  Weight: 4.5 kg

DRUGS (1)
  1. LEVEMIR [Suspect]
     Active Substance: INSULIN DETEMIR
     Indication: GESTATIONAL DIABETES
     Dosage: 30 U, QD
     Route: 064
     Dates: start: 201507

REACTIONS (2)
  - Foetal exposure during pregnancy [Recovered/Resolved]
  - Hypoglycaemia neonatal [Recovered/Resolved]

NARRATIVE: CASE EVENT DATE: 201507
